FAERS Safety Report 9774442 (Version 2)
Quarter: 2014Q1

REPORT INFORMATION
  Report Type: Spontaneous
  Country: FR (occurrence: FR)
  Receive Date: 20131220
  Receipt Date: 20140110
  Transmission Date: 20141002
  Serious: Yes (Hospitalization)
  Sender: FDA-Public Use
  Company Number: FR-JNJFOC-20131212022

PATIENT
  Age: 54 Year
  Sex: Female

DRUGS (1)
  1. TOPALGIC [Suspect]
     Indication: BONE PAIN
     Route: 065

REACTIONS (1)
  - Pyrexia [Recovered/Resolved]
